FAERS Safety Report 9328829 (Version 1)
Quarter: 2013Q2

REPORT INFORMATION
  Report Type: Spontaneous
  Country: ES (occurrence: ES)
  Receive Date: 20130604
  Receipt Date: 20130604
  Transmission Date: 20140414
  Serious: Yes (Other)
  Sender: FDA-Public Use
  Company Number: ES-BRISTOL-MYERS SQUIBB COMPANY-18948521

PATIENT
  Age: 64 Year
  Sex: Female

DRUGS (8)
  1. REYATAZ CAPS 300 MG [Suspect]
     Dosage: 1 DF: 1 CAP
     Route: 048
     Dates: start: 201104
  2. IBUPROFEN [Suspect]
     Indication: TENSION HEADACHE
     Route: 048
  3. NORVIR [Suspect]
     Route: 048
     Dates: start: 201104
  4. TRUVADA [Suspect]
     Dosage: 1DF: 200MG+245MG
     Route: 048
     Dates: start: 201104
  5. DIAZEPAM [Concomitant]
     Indication: ANXIETY
     Route: 048
     Dates: start: 20120819
  6. INDAPAMIDE [Concomitant]
     Indication: HYPERTENSION
     Route: 048
     Dates: start: 201004
  7. LANSOPRAZOLE [Concomitant]
     Indication: ABDOMINAL PAIN UPPER
     Route: 048
  8. LORMETAZEPAM [Concomitant]
     Indication: INSOMNIA
     Route: 048

REACTIONS (1)
  - Polyneuropathy [Unknown]
